FAERS Safety Report 8144263-8 (Version None)
Quarter: 2012Q1

REPORT INFORMATION
  Report Type: 
  Country: None (occurrence: None)
  Receive Date: 20120217
  Receipt Date: 20120210
  Transmission Date: 20120608
  Serious: Yes (Other)
  Sender: FDA-Public Use
  Company Number: US-SANOFI-AVENTIS-2012SA009254

PATIENT
  Age: 88 Year
  Sex: Female
  Weight: 61.3 kg

DRUGS (2)
  1. PLAVIX [Suspect]
     Route: 048
     Dates: start: 20110929
  2. AMLODIPINE [Concomitant]

REACTIONS (4)
  - URINARY TRACT INFECTION [None]
  - PAIN [None]
  - HERNIA [None]
  - BACK PAIN [None]
